FAERS Safety Report 16529122 (Version 2)
Quarter: 2019Q4

REPORT INFORMATION
  Report Type: Spontaneous
  Country: US (occurrence: US)
  Receive Date: 20190704
  Receipt Date: 20191002
  Transmission Date: 20200122
  Serious: No
  Sender: FDA-Public Use
  Company Number: US-GW PHARMA-201905USGW1597

PATIENT

DRUGS (4)
  1. ZOLOFT [Concomitant]
     Active Substance: SERTRALINE HYDROCHLORIDE
     Indication: PRODUCT USED FOR UNKNOWN INDICATION
     Dosage: UNK
     Route: 065
  2. DILANTIN [Concomitant]
     Active Substance: PHENYTOIN
     Dosage: INCREASED DOSE
     Route: 065
     Dates: start: 20190515
  3. EPIDIOLEX [Suspect]
     Active Substance: CANNABIDIOL
     Indication: EPILEPSY
     Dosage: 300 MILLIGRAM, TID
     Route: 048
     Dates: start: 20190123
  4. DILANTIN [Concomitant]
     Active Substance: PHENYTOIN
     Indication: PRODUCT USED FOR UNKNOWN INDICATION
     Dosage: UNK
     Route: 065
     Dates: end: 20190514

REACTIONS (3)
  - Seizure [Not Recovered/Not Resolved]
  - Aggression [Unknown]
  - Weight decreased [Unknown]

NARRATIVE: CASE EVENT DATE: 201905
